FAERS Safety Report 13900379 (Version 1)
Quarter: 2017Q3

REPORT INFORMATION
  Report Type: Spontaneous
  Country: DE (occurrence: DE)
  Receive Date: 20170824
  Receipt Date: 20170824
  Transmission Date: 20171127
  Serious: Yes (Hospitalization, Disabling)
  Sender: FDA-Public Use
  Company Number: GXKR2017DE004134

PATIENT
  Age: 69 Year
  Sex: Female
  Weight: 83 kg

DRUGS (10)
  1. ELIQUIS [Concomitant]
     Active Substance: APIXABAN
     Indication: PULMONARY EMBOLISM
  2. LEVOFLOXACIN HEXAL [Suspect]
     Active Substance: LEVOFLOXACIN
     Indication: URINARY TRACT INFECTION
     Dosage: 250 MG, ONCE DAILY
     Route: 048
     Dates: start: 20170717, end: 20170722
  3. FOSTER [Concomitant]
     Active Substance: BECLOMETHASONE\FORMOTEROL
     Indication: PRODUCT USED FOR UNKNOWN INDICATION
     Route: 065
  4. METFORMIN [Concomitant]
     Active Substance: METFORMIN HYDROCHLORIDE
     Indication: PRODUCT USED FOR UNKNOWN INDICATION
     Route: 065
  5. ROPINIROL [Concomitant]
     Active Substance: ROPINIROLE
     Indication: PRODUCT USED FOR UNKNOWN INDICATION
     Route: 065
  6. SALBUTAMOL [Concomitant]
     Active Substance: ALBUTEROL
     Indication: PRODUCT USED FOR UNKNOWN INDICATION
     Route: 065
  7. BAYOTENSIN [Concomitant]
     Indication: PRODUCT USED FOR UNKNOWN INDICATION
     Dosage: UNK UKN, AS NEEDED
     Route: 065
  8. EBRANTIL [Concomitant]
     Active Substance: URAPIDIL
     Indication: PRODUCT USED FOR UNKNOWN INDICATION
     Route: 065
  9. L-THYROXIN ^HENNING BERLIN^ [Concomitant]
     Indication: PRODUCT USED FOR UNKNOWN INDICATION
     Route: 065
  10. VALSARTAN. [Concomitant]
     Active Substance: VALSARTAN
     Indication: PRODUCT USED FOR UNKNOWN INDICATION
     Route: 065

REACTIONS (9)
  - Myalgia [Unknown]
  - Cough [Unknown]
  - Pulse abnormal [Unknown]
  - Hypertensive crisis [Unknown]
  - Blood pressure increased [Unknown]
  - Sputum discoloured [Unknown]
  - Tendon pain [Unknown]
  - Chest pain [Not Recovered/Not Resolved]
  - Dyspnoea [Not Recovered/Not Resolved]

NARRATIVE: CASE EVENT DATE: 20170717
